FAERS Safety Report 6844059-0 (Version None)
Quarter: 2010Q3

REPORT INFORMATION
  Report Type: 
  Country: None (occurrence: None)
  Receive Date: 20100712
  Receipt Date: 20100628
  Transmission Date: 20110219
  Serious: Yes (Hospitalization)
  Sender: FDA-Public Use
  Company Number: FR-2010-1494

PATIENT
  Age: 51 Year
  Sex: Male

DRUGS (2)
  1. NAVELBINE [Suspect]
     Indication: LUNG ADENOCARCINOMA
     Dosage: 58 MG QD IV
     Route: 042
     Dates: start: 20100614, end: 20100614
  2. HOLOXAN. MFR: NOT SPECIFIED [Suspect]
     Indication: LUNG ADENOCARCINOMA
     Dosage: 5910 MG QD IV
     Route: 042
     Dates: start: 20100614, end: 20100614

REACTIONS (1)
  - CEREBELLAR SYNDROME [None]
